FAERS Safety Report 8856556 (Version 1)
Quarter: 2012Q4

REPORT INFORMATION
  Report Type: 
  Country: US (occurrence: US)
  Receive Date: 20121023
  Receipt Date: 20121023
  Transmission Date: 20130627
  Serious: No
  Sender: FDA-Public Use
  Company Number: US-AMGEN-USASP2012057088

PATIENT
  Sex: Female

DRUGS (11)
  1. ENBREL [Suspect]
     Indication: PRODUCT USED FOR UNKNOWN INDICATION
     Dosage: 50 mg, qwk
     Route: 058
  2. CALCIUM D3                         /00944201/ [Concomitant]
     Dosage: 600 UNK, UNK
  3. FOLIC ACID [Concomitant]
     Dosage: UNK
  4. PREMARIN [Concomitant]
     Dosage: 0.45 mg, UNK
  5. ZETIA [Concomitant]
     Dosage: 10 mg, UNK
  6. LASIX                              /00032601/ [Concomitant]
     Dosage: 40 mg, UNK
  7. POTASSIUM [Concomitant]
     Dosage: 75 mg, UNK
  8. BENADRYL ALLERGY                   /00000402/ [Concomitant]
     Dosage: 12.5 mg, UNK
  9. ALEVE [Concomitant]
     Dosage: 220 mg, UNK
  10. LEFLUNOMIDE [Concomitant]
     Dosage: 20 mg, UNK
  11. NEXIUM                             /01479302/ [Concomitant]
     Dosage: 40 mg, UNK

REACTIONS (4)
  - Joint swelling [Unknown]
  - Injection site reaction [Unknown]
  - Injection site erythema [Unknown]
  - Injection site pruritus [Unknown]
